FAERS Safety Report 5313441-5 (Version None)
Quarter: 2007Q2

REPORT INFORMATION
  Report Type: 
  Country: None (occurrence: None)
  Receive Date: 20070424
  Receipt Date: 20070409
  Transmission Date: 20071010
  Serious: Yes (Death, Other)
  Sender: FDA-Public Use
  Company Number: 2007US000797

PATIENT
  Age: 29 Year
  Sex: 0

DRUGS (3)
  1. PROGRAF [Suspect]
     Indication: HEART AND LUNG TRANSPLANT
  2. AZATHIOPRINE [Concomitant]
  3. PREDNISOLONE [Concomitant]

REACTIONS (4)
  - ENCEPHALITIS [None]
  - HERPES ZOSTER [None]
  - INTESTINAL PERFORATION [None]
  - PNEUMONITIS [None]
